FAERS Safety Report 16974283 (Version 1)
Quarter: 2019Q4

REPORT INFORMATION
  Report Type: Spontaneous
  Country: AR (occurrence: AR)
  Receive Date: 20191030
  Receipt Date: 20191030
  Transmission Date: 20200122
  Serious: Yes (Other)
  Sender: FDA-Public Use
  Company Number: AR-PFIZER INC-2019467105

PATIENT
  Age: 74 Year
  Sex: Female

DRUGS (1)
  1. XELJANZ [Suspect]
     Active Substance: TOFACITINIB CITRATE
     Indication: RHEUMATOID ARTHRITIS
     Dosage: 5 MG, 2X/DAY
     Dates: start: 20181108

REACTIONS (3)
  - Bile duct stone [Recovering/Resolving]
  - Infection [Recovering/Resolving]
  - Pancreatolithiasis [Recovering/Resolving]

NARRATIVE: CASE EVENT DATE: 201908
